FAERS Safety Report 7180616-2 (Version None)
Quarter: 2010Q4

REPORT INFORMATION
  Report Type: 
  Country: None (occurrence: None)
  Receive Date: 20101221
  Receipt Date: 20101214
  Transmission Date: 20110411
  Serious: Yes (Other)
  Sender: FDA-Public Use
  Company Number: US-US-EMD SERONO, INC.-7032208

PATIENT
  Sex: Male

DRUGS (4)
  1. REBIF [Suspect]
     Indication: MULTIPLE SCLEROSIS
     Route: 058
     Dates: start: 20100614, end: 20101119
  2. LITHIUM [Concomitant]
  3. RILUTEK [Concomitant]
     Indication: AFFECTIVE DISORDER
  4. RILUTEK [Concomitant]
     Indication: ASTHENIA

REACTIONS (3)
  - DEPRESSION [None]
  - MULTIPLE SCLEROSIS RELAPSE [None]
  - SUICIDAL IDEATION [None]
